FAERS Safety Report 25671405 (Version 2)
Quarter: 2025Q3

REPORT INFORMATION
  Report Type: Spontaneous
  Country: CA (occurrence: CA)
  Receive Date: 20250812
  Receipt Date: 20250820
  Transmission Date: 20251021
  Serious: Yes (Other)
  Sender: PFIZER
  Company Number: CA-PFIZER INC-202500157832

PATIENT
  Age: 85 Year
  Sex: Female

DRUGS (1)
  1. PREMARIN [Suspect]
     Active Substance: ESTROGENS, CONJUGATED

REACTIONS (3)
  - Renal impairment [Unknown]
  - Cystitis [Unknown]
  - Product knowledge deficit [Unknown]
